FAERS Safety Report 12040314 (Version 3)
Quarter: 2016Q2

REPORT INFORMATION
  Report Type: Spontaneous
  Country: US (occurrence: US)
  Receive Date: 20160208
  Receipt Date: 20160411
  Transmission Date: 20160815
  Serious: Yes (Other)
  Sender: FDA-Public Use
  Company Number: US-009507513-1602USA000936

PATIENT
  Sex: Female
  Weight: 99.32 kg

DRUGS (1)
  1. NEXPLANON [Suspect]
     Active Substance: ETONOGESTREL
     Indication: CONTRACEPTION
     Dosage: UNK
     Route: 059
     Dates: start: 20150119

REACTIONS (2)
  - Drug interaction [Unknown]
  - Epilepsy [Unknown]

NARRATIVE: CASE EVENT DATE: 2016
